FAERS Safety Report 13960629 (Version 2)
Quarter: 2017Q4

REPORT INFORMATION
  Report Type: Spontaneous
  Country: US (occurrence: US)
  Receive Date: 20170912
  Receipt Date: 20171011
  Transmission Date: 20180320
  Serious: No
  Sender: FDA-Public Use
  Company Number: US-ELI_LILLY_AND_COMPANY-US201707011441

PATIENT
  Age: 75 Year
  Sex: Male

DRUGS (2)
  1. ADCIRCA [Suspect]
     Active Substance: TADALAFIL
     Indication: PRODUCT USED FOR UNKNOWN INDICATION
     Dosage: 40 MG (TWO 20 MG), DAILY
     Route: 065
  2. ADCIRCA [Suspect]
     Active Substance: TADALAFIL
     Dosage: 40 MG (TWO 20 MG), DAILY
     Route: 065
     Dates: end: 201708

REACTIONS (4)
  - Testicular swelling [Not Recovered/Not Resolved]
  - Penis disorder [Not Recovered/Not Resolved]
  - Feeling abnormal [Unknown]
  - Dysuria [Not Recovered/Not Resolved]

NARRATIVE: CASE EVENT DATE: 201708
